FAERS Safety Report 23887628 (Version 1)
Quarter: 2024Q2

REPORT INFORMATION
  Report Type: Report from Study
  Country: AR (occurrence: AR)
  Receive Date: 20240523
  Receipt Date: 20240523
  Transmission Date: 20240716
  Serious: Yes (Disabling, Other)
  Sender: FDA-Public Use
  Company Number: AR-JNJFOC-20240182465

PATIENT
  Age: 6 Decade
  Sex: Female
  Weight: 151 kg

DRUGS (1)
  1. SIMPONI [Suspect]
     Active Substance: GOLIMUMAB
     Indication: Rheumatoid arthritis
     Route: 041
     Dates: start: 20180813

REACTIONS (4)
  - Colitis [Recovering/Resolving]
  - Gait disturbance [Unknown]
  - Gastroenteritis [Recovering/Resolving]
  - Gait disturbance [Recovering/Resolving]

NARRATIVE: CASE EVENT DATE: 20230101
